FAERS Safety Report 7157055-3 (Version None)
Quarter: 2010Q4

REPORT INFORMATION
  Report Type: 
  Country: None (occurrence: None)
  Receive Date: 20101214
  Receipt Date: 20091230
  Transmission Date: 20110411
  Serious: No
  Sender: FDA-Public Use
  Company Number: US-ASTRAZENECA-2009UW13388

PATIENT
  Age: 28911 Day
  Sex: Male

DRUGS (11)
  1. CRESTOR [Suspect]
     Indication: BLOOD CHOLESTEROL INCREASED
     Route: 048
     Dates: start: 20090501, end: 20090525
  2. CRESTOR [Suspect]
     Route: 048
     Dates: start: 20090801, end: 20090901
  3. CRESTOR [Suspect]
     Route: 048
     Dates: start: 20090901, end: 20091020
  4. CRESTOR [Suspect]
     Route: 048
     Dates: start: 20091020, end: 20091028
  5. ALTACE [Concomitant]
  6. ASPIRIN [Concomitant]
  7. ALLOPURINOL [Concomitant]
     Indication: GOUT
  8. FLOMAX [Concomitant]
     Indication: BENIGN PROSTATIC HYPERPLASIA
  9. METOPROLOL TARTRATE [Concomitant]
  10. RAMIPRIL [Concomitant]
     Indication: ATRIAL FIBRILLATION
  11. MULTI-VITAMIN [Concomitant]

REACTIONS (10)
  - ABDOMINAL PAIN UPPER [None]
  - BURNING SENSATION [None]
  - HEADACHE [None]
  - MUSCLE SPASMS [None]
  - MUSCULAR WEAKNESS [None]
  - NAUSEA [None]
  - PAIN IN EXTREMITY [None]
  - PARAESTHESIA [None]
  - PERIPHERAL COLDNESS [None]
  - RASH [None]
